FAERS Safety Report 18351078 (Version 1)
Quarter: 2020Q4

REPORT INFORMATION
  Report Type: Spontaneous
  Country: JP (occurrence: JP)
  Receive Date: 20201006
  Receipt Date: 20201006
  Transmission Date: 20210114
  Serious: Yes (Hospitalization)
  Sender: FDA-Public Use
  Company Number: JP-ELI_LILLY_AND_COMPANY-JP202009012791

PATIENT
  Age: 85 Year
  Sex: Female

DRUGS (6)
  1. CYRAMZA [Suspect]
     Active Substance: RAMUCIRUMAB
     Indication: HEPATOCELLULAR CARCINOMA
     Dosage: 6 MG/KG
     Route: 041
     Dates: start: 20190822, end: 20191115
  2. VESICARE [Concomitant]
     Active Substance: SOLIFENACIN SUCCINATE
  3. RABEPRAZOLE [Concomitant]
     Active Substance: RABEPRAZOLE
  4. AMLODIPINE [Concomitant]
     Active Substance: AMLODIPINE BESYLATE
  5. CANDESARTAN. [Concomitant]
     Active Substance: CANDESARTAN
  6. FUROSEMIDE. [Concomitant]
     Active Substance: FUROSEMIDE

REACTIONS (2)
  - Oedema [Not Recovered/Not Resolved]
  - Ascites [Not Recovered/Not Resolved]

NARRATIVE: CASE EVENT DATE: 20191110
